FAERS Safety Report 20058015 (Version 1)
Quarter: 2021Q4

REPORT INFORMATION
  Report Type: Report from Study
  Country: US (occurrence: US)
  Receive Date: 20211111
  Receipt Date: 20211111
  Transmission Date: 20220303
  Serious: Yes (Death, Hospitalization, Other)
  Sender: FDA-Public Use
  Company Number: US-BAYER-2021A234413

PATIENT
  Age: 70 Year
  Sex: Female
  Weight: 81.587 kg

DRUGS (8)
  1. ADEMPAS [Suspect]
     Active Substance: RIOCIGUAT
     Indication: Pulmonary arterial hypertension
     Dosage: UNK
     Dates: start: 20210805
  2. ADEMPAS [Suspect]
     Active Substance: RIOCIGUAT
     Indication: Pulmonary arterial hypertension
     Dosage: 1 MG, TID
     Route: 048
     Dates: start: 2021
  3. MODERNA COVID-19 VACCINE [Suspect]
     Active Substance: CX-024414
     Indication: COVID-19 immunisation
  4. REMODULIN [Suspect]
     Active Substance: TREPROSTINIL
     Indication: Pulmonary arterial hypertension
     Dosage: 0.024 ?G/KG
     Route: 058
     Dates: start: 20210630
  5. REMODULIN [Suspect]
     Active Substance: TREPROSTINIL
     Indication: Pulmonary arterial hypertension
     Dosage: UNK
     Route: 058
     Dates: start: 2021
  6. OXYGEN [Suspect]
     Active Substance: OXYGEN
     Indication: Product used for unknown indication
  7. ELIQUIS [Concomitant]
     Active Substance: APIXABAN
     Dosage: UNK
  8. OPSUMIT [Concomitant]
     Active Substance: MACITENTAN
     Dosage: UNK

REACTIONS (22)
  - Death [Fatal]
  - Oedema [None]
  - Dyspnoea [None]
  - Blood sodium decreased [None]
  - Cardiac disorder [None]
  - Rectal haemorrhage [None]
  - Oxygen saturation decreased [None]
  - Hypoxia [None]
  - Diarrhoea [None]
  - Oxygen consumption increased [None]
  - Vaccination complication [None]
  - Oedema peripheral [None]
  - Dyspnoea [None]
  - Constipation [None]
  - Cardiomegaly [None]
  - Headache [None]
  - Dyspnoea exertional [None]
  - Faeces soft [None]
  - Nasal dryness [None]
  - Fatigue [None]
  - Feeling abnormal [None]
  - Hypotension [None]

NARRATIVE: CASE EVENT DATE: 20210101
